FAERS Safety Report 15028961 (Version 1)
Quarter: 2018Q2

REPORT INFORMATION
  Report Type: Spontaneous
  Country: US (occurrence: US)
  Receive Date: 20180529
  Receipt Date: 20180529
  Transmission Date: 20180711
  Serious: Yes (Life-Threatening, Other)
  Sender: FDA-Public Use
  Company Number: None

PATIENT
  Age: 66 Year
  Sex: Female
  Weight: 77.56 kg

DRUGS (2)
  1. DULOXETINE HCL DR 30MG CAP [Suspect]
     Active Substance: DULOXETINE HYDROCHLORIDE
     Indication: MENTAL DISORDER
     Dosage: ?          QUANTITY:1 DF DOSAGE FORM;?
     Route: 048
     Dates: start: 20180410, end: 20180418
  2. XANAX [Concomitant]
     Active Substance: ALPRAZOLAM

REACTIONS (10)
  - Thirst [None]
  - Oropharyngeal pain [None]
  - Dysphonia [None]
  - Hypersensitivity [None]
  - Oropharyngeal spasm [None]
  - Lethargy [None]
  - Slow speech [None]
  - Dysarthria [None]
  - Pharyngeal disorder [None]
  - Dysphemia [None]

NARRATIVE: CASE EVENT DATE: 20180419
